FAERS Safety Report 8828113 (Version 1)
Quarter: 2012Q4

REPORT INFORMATION
  Report Type: 
  Country: US (occurrence: US)
  Receive Date: 20121005
  Receipt Date: 20121005
  Transmission Date: 20130627
  Serious: Yes (Hospitalization)
  Sender: FDA-Public Use
  Company Number: US-BAYER-2012-100436

PATIENT
  Age: 29 Year
  Sex: Female

DRUGS (10)
  1. YAZ [Suspect]
  2. VICODIN [Concomitant]
  3. ADVIL [Concomitant]
     Indication: PAIN
  4. PRILOSEC [Concomitant]
  5. ASPIRIN [Concomitant]
  6. SENOKOT-S [Concomitant]
  7. OXYCODONE SLOW RELEASE [Concomitant]
  8. NIFEDIPINE ER [Concomitant]
  9. HYDROCODONE/ACETAMINOPHEN [Concomitant]
  10. VITAMIN K NOS [Concomitant]
     Dosage: 5 mg, UNK

REACTIONS (1)
  - Deep vein thrombosis [Recovering/Resolving]
